FAERS Safety Report 9464307 (Version 1)
Quarter: 2013Q3

REPORT INFORMATION
  Report Type: Report from Study
  Country: JP (occurrence: JP)
  Receive Date: 20130819
  Receipt Date: 20130819
  Transmission Date: 20140515
  Serious: Yes (Other)
  Sender: FDA-Public Use
  Company Number: JP-ABBOTT-13P-087-1132616-00

PATIENT
  Age: 68 Year
  Sex: Male

DRUGS (13)
  1. RITONAVIR [Suspect]
     Indication: ACQUIRED IMMUNODEFICIENCY SYNDROME
     Dosage: DAILY
     Route: 048
     Dates: start: 20090107, end: 20101005
  2. RITONAVIR [Suspect]
     Dosage: DAILY
     Route: 048
     Dates: start: 20101006, end: 20110831
  3. RITONAVIR [Suspect]
     Dates: start: 201109
  4. LEXIVA [Suspect]
     Indication: ACQUIRED IMMUNODEFICIENCY SYNDROME
     Route: 048
     Dates: start: 20090107, end: 20090611
  5. LEXIVA [Suspect]
     Route: 048
     Dates: start: 20090612
  6. EPZICOM [Suspect]
     Indication: ACQUIRED IMMUNODEFICIENCY SYNDROME
     Dosage: 1 IU AXA
     Route: 048
     Dates: start: 20090107
  7. DARUNAVIR [Suspect]
     Indication: ACQUIRED IMMUNODEFICIENCY SYNDROME
     Route: 048
     Dates: start: 20090107
  8. AZITHROMYCIN [Concomitant]
     Indication: PRODUCT USED FOR UNKNOWN INDICATION
     Dates: start: 20090107, end: 20110511
  9. CO-TRIMOXAZOLE [Concomitant]
     Indication: PRODUCT USED FOR UNKNOWN INDICATION
     Dates: start: 20090401, end: 20090707
  10. FLUCONAZOLE [Concomitant]
     Indication: PRODUCT USED FOR UNKNOWN INDICATION
     Dates: start: 20090401, end: 20090625
  11. LENOGRASTIM [Concomitant]
     Indication: PRODUCT USED FOR UNKNOWN INDICATION
     Dates: start: 20090401, end: 20090402
  12. BEZAFIBRATE [Concomitant]
     Indication: PRODUCT USED FOR UNKNOWN INDICATION
     Dates: start: 20100114
  13. ROSUVASTATIN CALCIUM [Concomitant]
     Indication: PRODUCT USED FOR UNKNOWN INDICATION
     Dates: start: 20120405

REACTIONS (3)
  - Diabetes mellitus [Not Recovered/Not Resolved]
  - Pancytopenia [Recovered/Resolved]
  - Rash [Unknown]
